FAERS Safety Report 20798096 (Version 1)
Quarter: 2022Q2

REPORT INFORMATION
  Report Type: Report from Study
  Country: CA (occurrence: CA)
  Receive Date: 20220507
  Receipt Date: 20220507
  Transmission Date: 20220720
  Serious: Yes (Other)
  Sender: FDA-Public Use
  Company Number: CA-ABBVIE-22K-028-4380387-00

PATIENT
  Sex: Female

DRUGS (1)
  1. HUMIRA [Suspect]
     Active Substance: ADALIMUMAB
     Indication: Crohn^s disease
     Route: 058
     Dates: start: 20150805

REACTIONS (7)
  - Small intestinal stenosis [Unknown]
  - Small intestinal obstruction [Unknown]
  - Surgery [Unknown]
  - Intestinal anastomosis complication [Unknown]
  - Postoperative adhesion [Unknown]
  - Arthropathy [Not Recovered/Not Resolved]
  - Scar [Unknown]
